FAERS Safety Report 23603823 (Version 1)
Quarter: 2024Q1

REPORT INFORMATION
  Report Type: Report from Study
  Country: US (occurrence: US)
  Receive Date: 20240307
  Receipt Date: 20240307
  Transmission Date: 20240409
  Serious: Yes (Other)
  Sender: FDA-Public Use
  Company Number: US-UCBSA-2024010503

PATIENT
  Age: 4 Year
  Sex: Female

DRUGS (1)
  1. FINTEPLA [Suspect]
     Active Substance: FENFLURAMINE
     Indication: Lennox-Gastaut syndrome
     Dosage: 0.9 MILLILITER, 2X/DAY (BID) FOR 7 DAYS, 1.8 MILLILITER, 2X/DAY (BID) THEREAFTER
     Dates: start: 20240213, end: 20240219

REACTIONS (2)
  - Seizure [Not Recovered/Not Resolved]
  - Rash [Not Recovered/Not Resolved]

NARRATIVE: CASE EVENT DATE: 20240201
